FAERS Safety Report 14128308 (Version 1)
Quarter: 2017Q4

REPORT INFORMATION
  Report Type: Spontaneous
  Country: US (occurrence: None)
  Receive Date: 20171025
  Receipt Date: 20171025
  Transmission Date: 20180321
  Serious: No
  Sender: FDA-Public Use
  Company Number: None

PATIENT
  Age: 55 Year
  Sex: Male

DRUGS (4)
  1. ATRIPLA [Suspect]
     Active Substance: EFAVIRENZ\EMTRICITABINE\TENOFOVIR DISOPROXIL FUMARATE
  2. TRUVADA [Suspect]
     Active Substance: EMTRICITABINE\TENOFOVIR DISOPROXIL FUMARATE
  3. REYATAZ [Suspect]
     Active Substance: ATAZANAVIR SULFATE
  4. NORVIR [Suspect]
     Active Substance: RITONAVIR

REACTIONS (2)
  - Irritability [None]
  - Blister [None]

NARRATIVE: CASE EVENT DATE: 20171001
